FAERS Safety Report 8777978 (Version 1)
Quarter: 2012Q4

REPORT INFORMATION
  Report Type: 
  Country: US (occurrence: US)
  Receive Date: 20120911
  Receipt Date: 20120911
  Transmission Date: 20130627
  Serious: No
  Sender: FDA-Public Use
  Company Number: US-PFIZER INC-2012221277

PATIENT
  Age: 48 Year
  Sex: Female

DRUGS (5)
  1. TOVIAZ [Suspect]
     Indication: MICTURITION URGENCY
     Dosage: 8 mg, Daily
     Route: 048
     Dates: start: 20120605, end: 20120716
  2. CALCIUM [Concomitant]
     Dosage: UNK
  3. RESTASIS [Concomitant]
     Dosage: UNK
  4. ESTRADIOL [Concomitant]
     Dosage: UNK
  5. SULFACETAMIDE [Concomitant]
     Dosage: UNK

REACTIONS (1)
  - Rash generalised [Recovered/Resolved]
